FAERS Safety Report 8095780-0 (Version None)
Quarter: 2012Q1

REPORT INFORMATION
  Report Type: 
  Country: None (occurrence: None)
  Receive Date: 20120129
  Receipt Date: 20111215
  Transmission Date: 20120608
  Serious: Yes (Hospitalization)
  Sender: FDA-Public Use
  Company Number: US-ABBOTT-11P-163-0883457-00

PATIENT
  Sex: Female
  Weight: 81.72 kg

DRUGS (8)
  1. FOLIC ACID [Concomitant]
     Indication: VITAMIN SUPPLEMENTATION
  2. XANAX [Concomitant]
     Indication: ANXIETY
  3. MELOXICAM [Concomitant]
     Indication: RHEUMATOID ARTHRITIS
     Dates: end: 20110801
  4. NEURONTIN [Concomitant]
     Indication: FIBROMYALGIA
  5. SINGULAIR [Concomitant]
     Indication: HYPERSENSITIVITY
  6. SYNTHROID [Concomitant]
     Indication: THYROID DISORDER
  7. HUMIRA [Suspect]
     Indication: RHEUMATOID ARTHRITIS
     Dates: start: 20090501, end: 20110701
  8. METHOTREXATE [Concomitant]
     Indication: RHEUMATOID ARTHRITIS
     Dates: end: 20110801

REACTIONS (2)
  - URINARY TRACT INFECTION [None]
  - INFECTION [None]
